FAERS Safety Report 6433249-7 (Version None)
Quarter: 2009Q4

REPORT INFORMATION
  Report Type: 
  Country: None (occurrence: None)
  Receive Date: 20091109
  Receipt Date: 20091028
  Transmission Date: 20100525
  Serious: Yes (Hospitalization)
  Sender: FDA-Public Use
  Company Number: FR-CELGENEUS-056-21880-09102367

PATIENT
  Sex: Male
  Weight: 67 kg

DRUGS (5)
  1. REVLIMID [Suspect]
     Route: 048
     Dates: start: 20091002, end: 20091012
  2. ARACYTINE [Suspect]
     Route: 058
     Dates: start: 20091002, end: 20091006
  3. DAUNORUBICIN HCL [Suspect]
     Route: 051
     Dates: start: 20091002, end: 20091002
  4. NEXIUM [Concomitant]
     Indication: DRUG USE FOR UNKNOWN INDICATION
     Route: 051
  5. ZELITREX [Concomitant]
     Indication: DRUG USE FOR UNKNOWN INDICATION
     Route: 048
     Dates: start: 20090902

REACTIONS (2)
  - ABDOMINAL PAIN [None]
  - FEBRILE BONE MARROW APLASIA [None]
